FAERS Safety Report 5860056-6 (Version None)
Quarter: 2008Q3

REPORT INFORMATION
  Report Type: 
  Country: None (occurrence: None)
  Receive Date: 20080827
  Receipt Date: 20080820
  Transmission Date: 20090109
  Serious: Yes (Hospitalization)
  Sender: FDA-Public Use
  Company Number: AU-ELI_LILLY_AND_COMPANY-AU200808004114

PATIENT
  Age: 99 Year
  Sex: Male
  Weight: 66 kg

DRUGS (1)
  1. BYETTA [Suspect]
     Dosage: 5 UG, DAILY (1/D)
     Route: 065
     Dates: end: 20080320

REACTIONS (1)
  - PANCREATITIS [None]
